FAERS Safety Report 7305482-3 (Version None)
Quarter: 2011Q1

REPORT INFORMATION
  Report Type: 
  Country: None (occurrence: None)
  Receive Date: 20110222
  Receipt Date: 20110209
  Transmission Date: 20110831
  Serious: Yes (Hospitalization, Other)
  Sender: FDA-Public Use
  Company Number: US-MYLANLABS-2011S1000709

PATIENT
  Age: 15 Year
  Sex: Male
  Weight: 64.82 kg

DRUGS (4)
  1. ETANERCEPT [Suspect]
     Indication: SPONDYLOARTHROPATHY
     Route: 058
     Dates: end: 20090601
  2. DICLOFENAC POTASSIUM [Suspect]
     Indication: SPONDYLOARTHROPATHY
     Dosage: 2X PER DAY, PRN
     Route: 048
  3. AMITRIPTYLINE HYDROCHLORIDE [Suspect]
     Indication: SPONDYLOARTHROPATHY
     Route: 048
  4. ETANERCEPT [Suspect]
     Route: 058
     Dates: start: 20090620

REACTIONS (1)
  - APPENDICITIS [None]
